FAERS Safety Report 5429208-3 (Version None)
Quarter: 2007Q3

REPORT INFORMATION
  Report Type: 
  Country: None (occurrence: None)
  Receive Date: 20070827
  Receipt Date: 20070827
  Transmission Date: 20080115
  Serious: Yes (Other)
  Sender: FDA-Public Use
  Company Number: None

PATIENT
  Age: 22 Year
  Sex: Male
  Weight: 65 kg

DRUGS (1)
  1. MEFLOQUINE [Suspect]
     Indication: MALARIA PROPHYLAXIS
     Dosage: 250MG ONCE A WEEK PO
     Route: 048
     Dates: start: 20040119, end: 20040615

REACTIONS (6)
  - CHEST PAIN [None]
  - FEAR [None]
  - HEART RATE DECREASED [None]
  - INITIAL INSOMNIA [None]
  - PALPITATIONS [None]
  - PANIC REACTION [None]
